FAERS Safety Report 15336585 (Version 1)
Quarter: 2018Q3

REPORT INFORMATION
  Report Type: Spontaneous
  Country: US (occurrence: US)
  Receive Date: 20180830
  Receipt Date: 20180830
  Transmission Date: 20181010
  Serious: No
  Sender: FDA-Public Use
  Company Number: US-JNJFOC-20180811147

PATIENT
  Age: 36 Month
  Sex: Female

DRUGS (1)
  1. INFANTS TYLENOL [Suspect]
     Active Substance: ACETAMINOPHEN
     Indication: ACCIDENTAL EXPOSURE TO PRODUCT
     Dosage: 2/3 BOTTLE?FULL, ONCE
     Route: 048
     Dates: start: 20180808, end: 20180808

REACTIONS (1)
  - Accidental exposure to product by child [Unknown]

NARRATIVE: CASE EVENT DATE: 20180808
